FAERS Safety Report 25565072 (Version 1)
Quarter: 2025Q3

REPORT INFORMATION
  Report Type: Spontaneous
  Country: EU (occurrence: EU)
  Receive Date: 20250716
  Receipt Date: 20250716
  Transmission Date: 20251020
  Serious: Yes (Other)
  Sender: RANBAXY
  Company Number: EU-SUN PHARMACEUTICAL INDUSTRIES LTD-2025RR-516602

PATIENT
  Age: 72 Year

DRUGS (2)
  1. PANTOPRAZOLE [Suspect]
     Active Substance: PANTOPRAZOLE
     Indication: Small intestine neuroendocrine tumour
     Dosage: 40 MILLIGRAM, DAILY
     Route: 065
  2. LANREOTIDE [Suspect]
     Active Substance: LANREOTIDE
     Indication: Small intestine neuroendocrine tumour
     Route: 065
     Dates: start: 202202

REACTIONS (2)
  - Drug ineffective [Recovering/Resolving]
  - Disease progression [Recovering/Resolving]
